FAERS Safety Report 6378051-X (Version None)
Quarter: 2009Q3

REPORT INFORMATION
  Report Type: 
  Country: None (occurrence: None)
  Receive Date: 20090925
  Receipt Date: 20090916
  Transmission Date: 20100115
  Serious: Yes (Hospitalization)
  Sender: FDA-Public Use
  Company Number: US-ABBOTT-09P-163-0591768-00

PATIENT
  Sex: Male
  Weight: 104.87 kg

DRUGS (13)
  1. HUMIRA [Suspect]
     Indication: CROHN'S DISEASE
  2. PREVACID [Suspect]
     Indication: CROHN'S DISEASE
  3. REMICADE [Suspect]
     Indication: CROHN'S DISEASE
     Route: 042
     Dates: start: 19990617
  4. REMICADE [Suspect]
     Dates: start: 19991116
  5. REMICADE [Suspect]
     Dates: start: 20010118
  6. REMICADE [Suspect]
     Dates: start: 20010806
  7. ZORBTIVE [Suspect]
     Indication: CROHN'S DISEASE
  8. VITAMIN B-12 [Suspect]
     Indication: CROHN'S DISEASE
  9. MESALAMINE [Concomitant]
     Indication: DRUG USE FOR UNKNOWN INDICATION
  10. METHOTREXATE [Concomitant]
     Indication: CROHN'S DISEASE
  11. ANTIBIOTICS [Concomitant]
     Indication: DRUG USE FOR UNKNOWN INDICATION
  12. ANTIDEPRESSANTS [Concomitant]
     Indication: DRUG USE FOR UNKNOWN INDICATION
  13. ACETAMINOPHEN [Concomitant]
     Indication: PREMEDICATION

REACTIONS (11)
  - ANGINA PECTORIS [None]
  - CHEST PAIN [None]
  - DIZZINESS [None]
  - HEADACHE [None]
  - HYPERGLYCAEMIA [None]
  - NAUSEA [None]
  - NEPHROLITHIASIS [None]
  - OEDEMA PERIPHERAL [None]
  - RASH [None]
  - RENAL FAILURE [None]
  - UPPER RESPIRATORY TRACT INFECTION [None]
